FAERS Safety Report 8168402 (Version 3)
Quarter: 2013Q1

REPORT INFORMATION
  Report Type: Spontaneous
  Country: US (occurrence: US)
  Receive Date: 20111004
  Receipt Date: 20130107
  Transmission Date: 20140127
  Serious: Yes (Other)
  Sender: FDA-Public Use
  Company Number: US-PFIZER INC-2011234283

PATIENT
  Age: 64 Year
  Sex: Female
  Weight: 79.37 kg

DRUGS (7)
  1. LIPITOR [Suspect]
     Indication: BLOOD CHOLESTEROL INCREASED
     Dosage: 40 MG, 1X/DAY
     Route: 048
  2. LIPITOR [Suspect]
     Indication: HYPERCHOLESTEROLAEMIA
  3. NEXIUM [Concomitant]
     Indication: BARRETT^S OESOPHAGUS
     Dosage: UNK
  4. NEXIUM [Concomitant]
     Indication: DYSPEPSIA
  5. NEXIUM [Concomitant]
     Indication: BARRETT^S OESOPHAGUS
  6. ASPIRIN [Concomitant]
     Dosage: UNK
  7. NORTRIPTYLINE [Concomitant]
     Dosage: UNK

REACTIONS (8)
  - Drug dose omission [Unknown]
  - Low density lipoprotein abnormal [Unknown]
  - Blood cholesterol increased [Recovered/Resolved]
  - Arterial stent insertion [Unknown]
  - Arthralgia [Not Recovered/Not Resolved]
  - Eye disorder [Unknown]
  - Nervousness [Unknown]
  - Vision blurred [Not Recovered/Not Resolved]
